FAERS Safety Report 20020940 (Version 2)
Quarter: 2021Q4

REPORT INFORMATION
  Report Type: Report from Study
  Country: US (occurrence: US)
  Receive Date: 20211101
  Receipt Date: 20211103
  Transmission Date: 20220303
  Serious: Yes (Death, Other)
  Sender: FDA-Public Use
  Company Number: US-PFIZER INC-202101463267

PATIENT

DRUGS (6)
  1. FLUDARABINE PHOSPHATE [Suspect]
     Active Substance: FLUDARABINE PHOSPHATE
     Indication: Myelofibrosis
     Dosage: 25 MG/M2, DAILY, INFUSION FROM DAY -9 TO DAY -5
  2. MELPHALAN [Suspect]
     Active Substance: MELPHALAN
     Indication: Myelofibrosis
     Dosage: 140 MG/M2, SINGLE, ON DAY -4
  3. RUXOLITINIB [Suspect]
     Active Substance: RUXOLITINIB
     Indication: Myelofibrosis
     Dosage: 5 MG, DAILY, DAY -3 TO DAY +30
     Route: 048
  4. SIROLIMUS [Concomitant]
     Active Substance: SIROLIMUS
     Indication: Prophylaxis against graft versus host disease
     Dosage: 12 MG, ORAL LOADING DOSE ON DAY -3
     Route: 048
  5. SIROLIMUS [Concomitant]
     Active Substance: SIROLIMUS
     Dosage: 4 MG, DAILY, ORALLY AS A SINGLE MORNING DAILY DOSE
     Route: 048
  6. TACROLIMUS [Concomitant]
     Active Substance: TACROLIMUS
     Indication: Prophylaxis against graft versus host disease
     Dosage: 0.02 MG/KG, DAILY, CONTINUOUS IV, BEGINNING ON DAY -3
     Route: 042

REACTIONS (5)
  - Respiratory failure [Fatal]
  - Mucosal inflammation [Fatal]
  - Obstructive airways disorder [Recovered/Resolved]
  - Pulseless electrical activity [Recovered/Resolved]
  - Cardiac arrest [Recovered/Resolved]
